FAERS Safety Report 8556212 (Version 2)
Quarter: 2013Q1

REPORT INFORMATION
  Report Type: Spontaneous
  Country: US (occurrence: US)
  Receive Date: 20120510
  Receipt Date: 20130125
  Transmission Date: 20140127
  Serious: Yes (Hospitalization, Congenital Anomaly)
  Sender: FDA-Public Use
  Company Number: US-GLAXOSMITHKLINE-A0976990A

PATIENT
  Age: 0 Year
  Sex: Female
  Weight: 3.5 kg

DRUGS (2)
  1. PAXIL [Suspect]
     Indication: HEADACHE
     Route: 064
     Dates: start: 199802, end: 199803
  2. PRENATAL VITAMIN [Concomitant]

REACTIONS (4)
  - Cleft lip and palate [Unknown]
  - Congenital nose malformation [Unknown]
  - Congenital anomaly [Unknown]
  - Foetal exposure during pregnancy [Unknown]
